FAERS Safety Report 21624799 (Version 1)
Quarter: 2022Q4

REPORT INFORMATION
  Report Type: Spontaneous
  Country: TH (occurrence: TH)
  Receive Date: 20221122
  Receipt Date: 20221122
  Transmission Date: 20230113
  Serious: No
  Sender: FDA-Public Use
  Company Number: TH-ALKEM LABORATORIES LIMITED-TH-ALKEM-2022-08215

PATIENT

DRUGS (2)
  1. ISONIAZID [Suspect]
     Active Substance: ISONIAZID
     Indication: Latent tuberculosis
     Dosage: 25.0 MILLIGRAM/KILOGRAM
     Route: 065
  2. RIFAPENTINE [Suspect]
     Active Substance: RIFAPENTINE
     Indication: Latent tuberculosis
     Dosage: 25.7 MILLIGRAM/KILOGRAM
     Route: 065

REACTIONS (1)
  - Rash [Recovered/Resolved]
